FAERS Safety Report 16051461 (Version 1)
Quarter: 2019Q1

REPORT INFORMATION
  Report Type: Spontaneous
  Country: CN (occurrence: CN)
  Receive Date: 20190308
  Receipt Date: 20190308
  Transmission Date: 20190418
  Serious: Yes (Hospitalization)
  Sender: FDA-Public Use
  Company Number: CN-BAYER-2019-042397

PATIENT
  Age: 73 Year
  Sex: Female

DRUGS (7)
  1. FUDOSTEINE [Suspect]
     Active Substance: FUDOSTEINE
     Indication: VENTRICULAR TACHYCARDIA
  2. FUDOSTEINE [Suspect]
     Active Substance: FUDOSTEINE
     Indication: PRODUCTIVE COUGH
  3. GLUCOBAY [Suspect]
     Active Substance: ACARBOSE
     Indication: VENTRICULAR TACHYCARDIA
  4. GLUCOBAY [Suspect]
     Active Substance: ACARBOSE
     Indication: ELECTROLYTE IMBALANCE
  5. FUDOSTEINE [Suspect]
     Active Substance: FUDOSTEINE
     Indication: ELECTROLYTE IMBALANCE
  6. FUDOSTEINE [Suspect]
     Active Substance: FUDOSTEINE
     Indication: HYPERNATRAEMIA
     Dosage: 0.4 G, TID
     Route: 048
     Dates: start: 20181224, end: 20181224
  7. GLUCOBAY [Suspect]
     Active Substance: ACARBOSE
     Indication: HYPERNATRAEMIA
     Dosage: 0.1 G, TID
     Route: 055
     Dates: start: 20181206, end: 20190107

REACTIONS (1)
  - Laryngeal oedema [Recovering/Resolving]

NARRATIVE: CASE EVENT DATE: 20181225
